FAERS Safety Report 8869351 (Version 1)
Quarter: 2012Q4

REPORT INFORMATION
  Report Type: Spontaneous
  Country: GB (occurrence: None)
  Receive Date: 20121022
  Receipt Date: 20121022
  Transmission Date: 20130627
  Serious: Yes (Other)
  Sender: FDA-Public Use
  Company Number: 2012-01547

PATIENT
  Age: 76 Year
  Sex: Male
  Weight: 71.21 kg

DRUGS (3)
  1. LOSARTAN [Suspect]
     Indication: HYPERTENSION
     Route: 048
     Dates: start: 20120925, end: 20120930
  2. BISOPROLOL (BISOPROLOL FUMARATE) [Concomitant]
  3. DOXAZOCIN [Concomitant]

REACTIONS (7)
  - Eye pain [None]
  - Tremor [None]
  - Head discomfort [None]
  - Balance disorder [None]
  - Malaise [None]
  - Feeling abnormal [None]
  - Hypokinesia [None]
